FAERS Safety Report 10684916 (Version 1)
Quarter: 2014Q4

REPORT INFORMATION
  Report Type: Spontaneous
  Country: None (occurrence: None)
  Receive Date: 20141230
  Receipt Date: 20141230
  Transmission Date: 20150529
  Serious: No
  Sender: FDA-Public Use
  Company Number: None

PATIENT
  Age: 43 Year
  Sex: Male
  Weight: 74.39 kg

DRUGS (3)
  1. OMEPRAZOLE 20MG [Suspect]
     Active Substance: OMEPRAZOLE
     Indication: DYSPEPSIA
     Dosage: 1 PILL  TWICE DAILY TAKEN BY MOUTH
     Route: 048
  2. OMEPRAZOLE 20MG [Suspect]
     Active Substance: OMEPRAZOLE
     Indication: ABDOMINAL PAIN
     Dosage: 1 PILL  TWICE DAILY TAKEN BY MOUTH
     Route: 048
  3. OMEPRAZOLE 20MG [Suspect]
     Active Substance: OMEPRAZOLE
     Indication: GASTROOESOPHAGEAL REFLUX DISEASE
     Dosage: 1 PILL  TWICE DAILY TAKEN BY MOUTH
     Route: 048

REACTIONS (3)
  - Fear [None]
  - Insomnia [None]
  - Panic attack [None]

NARRATIVE: CASE EVENT DATE: 20141218
